FAERS Safety Report 4726316-7 (Version None)
Quarter: 2005Q3

REPORT INFORMATION
  Report Type: 
  Country: None (occurrence: None)
  Receive Date: 20050727
  Receipt Date: 20050722
  Transmission Date: 20060218
  Serious: Yes (Death)
  Sender: FDA-Public Use
  Company Number: FR-ROCHE-411667

PATIENT
  Age: 79 Year
  Sex: Female
  Weight: 100 kg

DRUGS (6)
  1. ROCEPHIN [Suspect]
     Route: 042
     Dates: start: 20050519, end: 20050531
  2. CIFLOX [Suspect]
     Route: 048
     Dates: start: 20050519, end: 20050601
  3. MONO-TILDIEM [Concomitant]
     Indication: ESSENTIAL HYPERTENSION
     Route: 048
     Dates: start: 20050531, end: 20050607
  4. SUCRALFATE [Concomitant]
     Route: 048
     Dates: start: 20050601, end: 20050602
  5. LASIX [Concomitant]
     Indication: ESSENTIAL HYPERTENSION
     Route: 048
     Dates: end: 20050603
  6. DUPHALAC [Concomitant]
     Indication: CONSTIPATION
     Route: 048
     Dates: start: 20050531, end: 20050602

REACTIONS (1)
  - TOXIC EPIDERMAL NECROLYSIS [None]
